FAERS Safety Report 7452929-8 (Version None)
Quarter: 2011Q2

REPORT INFORMATION
  Report Type: 
  Country: None (occurrence: None)
  Receive Date: 20110502
  Receipt Date: 20101021
  Transmission Date: 20111010
  Serious: No
  Sender: FDA-Public Use
  Company Number: US-ASTRAZENECA-2010SE50107

PATIENT
  Age: 44 Year
  Sex: Male
  Weight: 77.1 kg

DRUGS (2)
  1. FEKSEN [Suspect]
     Indication: GASTROOESOPHAGEAL REFLUX DISEASE
     Route: 065
     Dates: start: 20101001
  2. NEXIUM [Suspect]
     Indication: GASTROOESOPHAGEAL REFLUX DISEASE
     Route: 048

REACTIONS (3)
  - DRUG DOSE OMISSION [None]
  - DYSPEPSIA [None]
  - ABDOMINAL DISTENSION [None]
